FAERS Safety Report 21376962 (Version 1)
Quarter: 2022Q3

REPORT INFORMATION
  Report Type: Spontaneous
  Country: IL (occurrence: IL)
  Receive Date: 20220926
  Receipt Date: 20220926
  Transmission Date: 20221026
  Serious: Yes (Other)
  Sender: FDA-Public Use
  Company Number: IL-PFIZER INC-PV202200069824

PATIENT
  Age: 29 Year

DRUGS (2)
  1. LYRICA [Suspect]
     Active Substance: PREGABALIN
     Indication: Pelvic pain
     Dosage: 25 MG, FIRST WEEK
  2. LYRICA [Suspect]
     Active Substance: PREGABALIN
     Dosage: 50 MG (8TH DAY)

REACTIONS (3)
  - Polyneuropathy [Not Recovered/Not Resolved]
  - Neuralgia [Not Recovered/Not Resolved]
  - Off label use [Unknown]
